FAERS Safety Report 24992480 (Version 2)
Quarter: 2025Q1

REPORT INFORMATION
  Report Type: Spontaneous
  Country: US (occurrence: US)
  Receive Date: 20250220
  Receipt Date: 20250225
  Transmission Date: 20250408
  Serious: Yes (Death, Life-Threatening, Hospitalization, Other)
  Sender: SANOFI AVENTIS
  Company Number: US-MLMSERVICE-20250210-PI405236-00106-1

PATIENT
  Age: 90 Year
  Sex: Male

DRUGS (1)
  1. CLOPIDOGREL BISULFATE [Suspect]
     Active Substance: CLOPIDOGREL BISULFATE
     Indication: Angiopathy

REACTIONS (17)
  - Subdural haematoma [Fatal]
  - Depressed level of consciousness [Fatal]
  - Mental status changes [Fatal]
  - Hypoaesthesia [Fatal]
  - Back pain [Fatal]
  - Asthenia [Fatal]
  - Nausea [Fatal]
  - Vomiting [Fatal]
  - Hemiparesis [Fatal]
  - Brain herniation [Fatal]
  - Acute respiratory failure [Fatal]
  - Cerebrospinal fluid leakage [Fatal]
  - Intracranial hypotension [Fatal]
  - Subarachnoid haemorrhage [Fatal]
  - Cervical spinal stenosis [Fatal]
  - Intervertebral disc protrusion [Fatal]
  - Vertebral osteophyte [Fatal]
